FAERS Safety Report 8026931-1 (Version None)
Quarter: 2012Q1

REPORT INFORMATION
  Report Type: 
  Country: None (occurrence: None)
  Receive Date: 20120106
  Receipt Date: 20120103
  Transmission Date: 20120608
  Serious: Yes (Other)
  Sender: FDA-Public Use
  Company Number: AU-JNJFOC-20120100420

PATIENT
  Sex: Female

DRUGS (2)
  1. REMICADE [Suspect]
     Indication: CROHN'S DISEASE
     Route: 042
     Dates: start: 20111216
  2. REMICADE [Suspect]
     Route: 042
     Dates: start: 20081021

REACTIONS (5)
  - LOWER RESPIRATORY TRACT INFECTION [None]
  - TEMPERATURE INTOLERANCE [None]
  - TRANSIENT ACANTHOLYTIC DERMATOSIS [None]
  - SKIN MASS [None]
  - HEPATIC STEATOSIS [None]
